FAERS Safety Report 6169426-2 (Version None)
Quarter: 2009Q2

REPORT INFORMATION
  Report Type: 
  Country: None (occurrence: None)
  Receive Date: 20090424
  Receipt Date: 20081202
  Transmission Date: 20091009
  Serious: No
  Sender: FDA-Public Use
  Company Number: ALL1-2008-03293

PATIENT
  Age: 5 Year
  Sex: Female
  Weight: 13.2 kg

DRUGS (1)
  1. VYVANSE [Suspect]
     Indication: ABNORMAL BEHAVIOUR
     Dosage: 20 MG, 1X/DAY:QD, ORAL
     Route: 048
     Dates: start: 20081111

REACTIONS (3)
  - CRYING [None]
  - OFF LABEL USE [None]
  - PRESSURE OF SPEECH [None]
